FAERS Safety Report 10558624 (Version 10)
Quarter: 2015Q4

REPORT INFORMATION
  Report Type: Spontaneous
  Country: US (occurrence: US)
  Receive Date: 20141031
  Receipt Date: 20151008
  Transmission Date: 20160304
  Serious: No
  Sender: FDA-Public Use
  Company Number: US-PFIZER INC-2014299650

PATIENT
  Age: 67 Year
  Sex: Male
  Weight: 68 kg

DRUGS (3)
  1. SUTENT [Suspect]
     Active Substance: SUNITINIB MALATE
     Dosage: 37.5 MG, DAILY
     Dates: start: 20130106
  2. SUTENT [Suspect]
     Active Substance: SUNITINIB MALATE
     Dosage: 37.5 MG, DAILY
     Dates: start: 20130601
  3. SUTENT [Suspect]
     Active Substance: SUNITINIB MALATE
     Indication: GASTROINTESTINAL STROMAL TUMOUR
     Dosage: 37.5 MG, 1X/DAY
     Dates: start: 20130401

REACTIONS (12)
  - Peripheral swelling [Unknown]
  - Weight decreased [Not Recovered/Not Resolved]
  - Dyspepsia [Unknown]
  - Weight increased [Unknown]
  - Decreased appetite [Not Recovered/Not Resolved]
  - Dysgeusia [Recovered/Resolved]
  - Joint swelling [Unknown]
  - Hyperkeratosis [Recovering/Resolving]
  - Diarrhoea [Not Recovered/Not Resolved]
  - Blood pressure diastolic increased [Not Recovered/Not Resolved]
  - Palmar-plantar erythrodysaesthesia syndrome [Not Recovered/Not Resolved]
  - Gait disturbance [Unknown]

NARRATIVE: CASE EVENT DATE: 20130401
